FAERS Safety Report 11065769 (Version 1)
Quarter: 2015Q2

REPORT INFORMATION
  Report Type: Spontaneous
  Country: US (occurrence: None)
  Receive Date: 20150423
  Receipt Date: 20150423
  Transmission Date: 20150821
  Serious: Yes (Hospitalization)
  Sender: FDA-Public Use
  Company Number: US-2015VAL000257

PATIENT
  Sex: Male

DRUGS (3)
  1. METOPROLOL /00376902/ [Suspect]
     Active Substance: METOPROLOL
     Indication: CHEST PAIN
     Route: 048
  2. LOPRESSOR [Suspect]
     Active Substance: METOPROLOL TARTRATE
     Indication: HYPERTENSION
     Dosage: 100 MG, BID, PAST 3-4 YEARS
     Route: 048
  3. METOPROLOL /00376902/ [Suspect]
     Active Substance: METOPROLOL
     Indication: HYPERTENSION
     Route: 048

REACTIONS (5)
  - Medication error [None]
  - Bradyarrhythmia [None]
  - Presyncope [None]
  - Atrioventricular block complete [None]
  - Dizziness [None]
